FAERS Safety Report 18563888 (Version 1)
Quarter: 2020Q4

REPORT INFORMATION
  Report Type: Spontaneous
  Country: IN (occurrence: IN)
  Receive Date: 20201201
  Receipt Date: 20201201
  Transmission Date: 20210114
  Serious: Yes (Hospitalization, Other)
  Sender: FDA-Public Use
  Company Number: IN-STRIDES ARCOLAB LIMITED-2020SP014608

PATIENT
  Age: 5 Decade
  Sex: Female

DRUGS (1)
  1. GABAPENTIN. [Suspect]
     Active Substance: GABAPENTIN
     Indication: NECK PAIN
     Dosage: UNK
     Route: 048

REACTIONS (21)
  - Lip scab [Unknown]
  - Corneal neovascularisation [Recovered/Resolved]
  - Ulcerative keratitis [Recovered/Resolved]
  - Photophobia [Unknown]
  - Rash [Unknown]
  - Off label use [Unknown]
  - Corneal oedema [Recovered/Resolved]
  - Keratitis [Recovered/Resolved]
  - Dry eye [Recovered/Resolved]
  - Mouth ulceration [Unknown]
  - Onychomadesis [Unknown]
  - Visual impairment [Recovered/Resolved]
  - Limbal stem cell deficiency [Unknown]
  - Symblepharon [Recovered/Resolved]
  - Gait inability [Unknown]
  - Skin hypopigmentation [Unknown]
  - Conjunctivitis [Recovered/Resolved]
  - Stevens-Johnson syndrome [Recovered/Resolved]
  - Skin exfoliation [Unknown]
  - Anonychia [Unknown]
  - Blindness [Recovered/Resolved]
